FAERS Safety Report 7445358-4 (Version None)
Quarter: 2011Q2

REPORT INFORMATION
  Report Type: 
  Country: None (occurrence: None)
  Receive Date: 20110429
  Receipt Date: 20101020
  Transmission Date: 20111010
  Serious: No
  Sender: FDA-Public Use
  Company Number: A0888925A

PATIENT
  Age: 25 Year
  Sex: Male
  Weight: 59.5 kg

DRUGS (1)
  1. ZOFRAN [Suspect]
     Indication: NAUSEA
     Dosage: 4MG UNKNOWN
     Route: 065
     Dates: start: 20100914, end: 20101020

REACTIONS (2)
  - CONSTIPATION [None]
  - DRUG INEFFECTIVE [None]
